FAERS Safety Report 19467646 (Version 1)
Quarter: 2021Q2

REPORT INFORMATION
  Report Type: Spontaneous
  Country: US (occurrence: US)
  Receive Date: 20210625
  Receipt Date: 20210625
  Transmission Date: 20210717
  Serious: Yes (Hospitalization)
  Sender: FDA-Public Use
  Company Number: None

PATIENT
  Sex: Female

DRUGS (10)
  1. UBRELVY [Concomitant]
     Active Substance: UBROGEPANT
  2. ATOMOXETINE. [Concomitant]
     Active Substance: ATOMOXETINE HYDROCHLORIDE
  3. APTIOM [Concomitant]
     Active Substance: ESLICARBAZEPINE ACETATE
  4. METHYLPHENID [Concomitant]
     Active Substance: METHYLPHENIDATE
  5. TRINTELLIX [Concomitant]
     Active Substance: VORTIOXETINE HYDROBROMIDE
  6. TOPAMAX [Concomitant]
     Active Substance: TOPIRAMATE
  7. VRAYLAR [Concomitant]
     Active Substance: CARIPRAZINE
  8. BOTOX [Suspect]
     Active Substance: ONABOTULINUMTOXINA
     Indication: MIGRAINE
     Dosage: 200 UNITS OTHER FREQUENCY:Q12WK;  IM BY PROVIDER?
     Route: 030
     Dates: start: 20180221
  9. CLONAZEPAM. [Concomitant]
     Active Substance: CLONAZEPAM
  10. TOPIRAMATE. [Concomitant]
     Active Substance: TOPIRAMATE

REACTIONS (1)
  - Fall [None]
